FAERS Safety Report 11484833 (Version 1)
Quarter: 2015Q3

REPORT INFORMATION
  Report Type: Spontaneous
  Country: US (occurrence: None)
  Receive Date: 20150909
  Receipt Date: 20150909
  Transmission Date: 20151125
  Serious: Yes (Hospitalization)
  Sender: FDA-Public Use
  Company Number: None

PATIENT
  Age: 64 Year
  Sex: Female
  Weight: 72.2 kg

DRUGS (4)
  1. DOXORUBICIN HYDROCHLORIDE. [Suspect]
     Active Substance: DOXORUBICIN HYDROCHLORIDE
     Dates: end: 20090423
  2. NEULASTA [Suspect]
     Active Substance: PEGFILGRASTIM
     Dates: end: 20090424
  3. CYCLOPHOSPHAMIDE. [Suspect]
     Active Substance: CYCLOPHOSPHAMIDE
     Dates: end: 20090423
  4. TAXOL [Suspect]
     Active Substance: PACLITAXEL
     Dates: end: 20090730

REACTIONS (2)
  - Myelodysplastic syndrome [None]
  - Acute myeloid leukaemia [None]

NARRATIVE: CASE EVENT DATE: 20150220
